FAERS Safety Report 8201259-5 (Version None)
Quarter: 2012Q1

REPORT INFORMATION
  Report Type: 
  Country: None (occurrence: None)
  Receive Date: 20120312
  Receipt Date: 20120305
  Transmission Date: 20120608
  Serious: Yes (Death, Other)
  Sender: FDA-Public Use
  Company Number: US-CELGENEUS-163-21880-11121745

PATIENT
  Sex: Female

DRUGS (1)
  1. REVLIMID [Suspect]
     Indication: MULTIPLE MYELOMA
     Dosage: 5 MILLIGRAM
     Route: 048
     Dates: start: 20111102, end: 20111113

REACTIONS (5)
  - CARDIAC FAILURE CONGESTIVE [None]
  - MULTIPLE MYELOMA [None]
  - PNEUMONIA [None]
  - RESPIRATORY FAILURE [None]
  - MYOCARDIAL INFARCTION [None]
